FAERS Safety Report 11439511 (Version 1)
Quarter: 2015Q3

REPORT INFORMATION
  Report Type: Spontaneous
  Country: US (occurrence: US)
  Receive Date: 20150901
  Receipt Date: 20150901
  Transmission Date: 20151125
  Serious: No
  Sender: FDA-Public Use
  Company Number: US-ROCHE-1073457

PATIENT
  Sex: Female

DRUGS (3)
  1. RIBASPHERE RIBAPAK [Suspect]
     Active Substance: RIBAVIRIN
     Indication: CHRONIC HEPATITIS C
     Dosage: DIVIDED DOSES. RIBAPAK WAS IN TOTAL TAKEN FOR 8 MONTHS IN 2011.
     Route: 065
     Dates: start: 20111004, end: 20120329
  2. PEGASYS [Suspect]
     Active Substance: PEGINTERFERON ALFA-2A
     Indication: CHRONIC HEPATITIS C
     Dosage: PEGASYS WAS IN TOTAL TAKEN FOR 8 MONTHS IN 2011.
     Route: 065
     Dates: start: 20111004, end: 20120329
  3. RIBAVIRIN. [Suspect]
     Active Substance: RIBAVIRIN
     Indication: PRODUCT USED FOR UNKNOWN INDICATION
     Dosage: RIBAVIRIN WAS IN TOTAL TAKEN FOR 8 MONTHS IN 2011.
     Route: 065

REACTIONS (10)
  - Alopecia [Unknown]
  - Skin exfoliation [Unknown]
  - Urticaria [Unknown]
  - Rash [Not Recovered/Not Resolved]
  - Chest pain [Unknown]
  - Lip swelling [Unknown]
  - Swelling face [Recovered/Resolved]
  - Thyroid disorder [Not Recovered/Not Resolved]
  - Skin fissures [Unknown]
  - Swollen tongue [Unknown]
